FAERS Safety Report 12395145 (Version 3)
Quarter: 2016Q2

REPORT INFORMATION
  Report Type: Report from Study
  Country: US (occurrence: US)
  Receive Date: 20160523
  Receipt Date: 20160602
  Transmission Date: 20160815
  Serious: No
  Sender: FDA-Public Use
  Company Number: PHEH2016US008645

PATIENT
  Age: 56 Year
  Sex: Female

DRUGS (2)
  1. CORTIZONE 10 [Concomitant]
     Active Substance: HYDROCORTISONE
     Indication: PRODUCT USED FOR UNKNOWN INDICATION
     Route: 065
  2. COSENTYX [Suspect]
     Active Substance: SECUKINUMAB
     Indication: PRODUCT USED FOR UNKNOWN INDICATION
     Dosage: 300 MG, QW
     Route: 065

REACTIONS (2)
  - Incorrect dose administered by device [Unknown]
  - Device issue [Unknown]

NARRATIVE: CASE EVENT DATE: 20160328
